FAERS Safety Report 7597424-0 (Version None)
Quarter: 2011Q3

REPORT INFORMATION
  Report Type: 
  Country: None (occurrence: None)
  Receive Date: 20110708
  Receipt Date: 20110627
  Transmission Date: 20111222
  Serious: Yes (Other)
  Sender: FDA-Public Use
  Company Number: PHHY2011DE26800

PATIENT
  Sex: Female
  Weight: 53 kg

DRUGS (4)
  1. EXTAVIA [Suspect]
     Indication: MULTIPLE SCLEROSIS
     Dosage: 250 UG, QOD
     Route: 058
     Dates: start: 20110228
  2. SODIUM IODIDE [Concomitant]
     Indication: THYROID HAEMORRHAGE
     Dosage: 200 MG, QD
     Route: 048
  3. DEPO-CLINOVIR [Concomitant]
     Indication: METRORRHAGIA
     Route: 030
  4. SIMVASTATIN [Concomitant]
     Indication: HYPERCHOLESTEROLAEMIA
     Dosage: 20 MG, QD
     Route: 048

REACTIONS (13)
  - PALPITATIONS [None]
  - HAEMODYNAMIC INSTABILITY [None]
  - ASTHENIA [None]
  - ARRHYTHMIA [None]
  - BONE PAIN [None]
  - HYPERHIDROSIS [None]
  - SLEEP DISORDER [None]
  - HEADACHE [None]
  - EXTRASYSTOLES [None]
  - DIZZINESS [None]
  - TACHYCARDIA [None]
  - INFLUENZA LIKE ILLNESS [None]
  - ARTHRALGIA [None]
